FAERS Safety Report 8630338 (Version 2)
Quarter: 2012Q4

REPORT INFORMATION
  Report Type: 
  Country: GB (occurrence: GB)
  Receive Date: 20120622
  Receipt Date: 20120828
  Transmission Date: 20130627
  Serious: Yes (Hospitalization, Other)
  Sender: FDA-Public Use
  Company Number: GB-PFIZER INC-2012037934

PATIENT
  Age: 76 Year
  Sex: Male
  Weight: 96 kg

DRUGS (2)
  1. CISPLATIN [Suspect]
     Indication: LUNG NEOPLASM MALIGNANT
     Dosage: UNK
     Route: 042
     Dates: start: 20120120
  2. NAVELBINE [Suspect]
     Indication: LUNG NEOPLASM MALIGNANT
     Dosage: 80mg/m2
     Route: 048
     Dates: start: 20120120

REACTIONS (2)
  - Constipation [Unknown]
  - Ileus paralytic [Recovered/Resolved]
